FAERS Safety Report 5167721-7 (Version None)
Quarter: 2006Q4

REPORT INFORMATION
  Report Type: 
  Country: None (occurrence: None)
  Receive Date: 20061204
  Receipt Date: 20061204
  Transmission Date: 20070319
  Serious: Yes (Hospitalization, Other)
  Sender: FDA-Public Use
  Company Number: None

PATIENT
  Sex: Female
  Weight: 80.7403 kg

DRUGS (2)
  1. LOESTRIN 24 FE WARNER CHILCOTT [Suspect]
     Indication: HORMONE REPLACEMENT THERAPY
     Dosage: 1 TABLET  DAILY  PO
     Route: 048
  2. ASPIRIN [Concomitant]

REACTIONS (1)
  - DEEP VEIN THROMBOSIS [None]
